FAERS Safety Report 16243535 (Version 5)
Quarter: 2023Q4

REPORT INFORMATION
  Report Type: Spontaneous
  Country: US (occurrence: US)
  Receive Date: 20190426
  Receipt Date: 20231023
  Transmission Date: 20240110
  Serious: Yes (Hospitalization, Other)
  Sender: FDA-Public Use
  Company Number: US-GSKCCFUS-AE-11935

PATIENT

DRUGS (2)
  1. TRELEGY ELLIPTA [Suspect]
     Active Substance: FLUTICASONE FUROATE\UMECLIDINIUM BROMIDE\VILANTEROL TRIFENATATE
     Indication: Chronic obstructive pulmonary disease
     Dosage: 1 PUFF(S), QD, 100MCG/62.5MCG/25MCG
     Route: 055
     Dates: start: 201812
  2. TRELEGY ELLIPTA [Suspect]
     Active Substance: FLUTICASONE FUROATE\UMECLIDINIUM BROMIDE\VILANTEROL TRIFENATATE
     Indication: Chronic obstructive pulmonary disease
     Dosage: 100 UG, QD
     Dates: start: 2018

REACTIONS (13)
  - Lung neoplasm malignant [Unknown]
  - Hypotension [Unknown]
  - Cystitis [Unknown]
  - Pneumonia [Unknown]
  - Breast cancer [Unknown]
  - Eye operation [Unknown]
  - Fracture [Unknown]
  - Dyspnoea [Unknown]
  - Wheezing [Unknown]
  - Neck mass [Unknown]
  - Drug ineffective [Unknown]
  - Product dose omission issue [Unknown]
  - Product complaint [Unknown]

NARRATIVE: CASE EVENT DATE: 20190201
